FAERS Safety Report 6983177-3 (Version None)
Quarter: 2010Q3

REPORT INFORMATION
  Report Type: 
  Country: None (occurrence: None)
  Receive Date: 20100914
  Receipt Date: 20100625
  Transmission Date: 20110219
  Serious: Yes (Other)
  Sender: FDA-Public Use
  Company Number: US-PFIZER INC-2010079809

PATIENT
  Sex: Male

DRUGS (2)
  1. LYRICA [Suspect]
     Indication: PARAESTHESIA
     Dosage: 50 MG, 2X/DAY
     Dates: start: 20100101, end: 20100101
  2. LYRICA [Suspect]
     Dosage: 100 MG, 2X/DAY
     Dates: start: 20100101, end: 20100623

REACTIONS (6)
  - DIZZINESS [None]
  - DRY MOUTH [None]
  - GAIT DISTURBANCE [None]
  - PAIN [None]
  - SWELLING [None]
  - VISION BLURRED [None]
